FAERS Safety Report 5759906-3 (Version None)
Quarter: 2008Q2

REPORT INFORMATION
  Report Type: 
  Country: None (occurrence: None)
  Receive Date: 20080605
  Receipt Date: 20080529
  Transmission Date: 20081010
  Serious: Yes (Other)
  Sender: FDA-Public Use
  Company Number: US-JNJFOC-20080600176

PATIENT
  Sex: Female

DRUGS (2)
  1. TOPAMAX [Suspect]
     Route: 048
  2. TOPAMAX [Suspect]
     Indication: MIGRAINE PROPHYLAXIS
     Dosage: 25 MG DAILY TITRATING UP TO 200 MG FROM 2006 UNTIL MAY 2008
     Route: 048

REACTIONS (4)
  - BACK PAIN [None]
  - DIZZINESS [None]
  - DYSARTHRIA [None]
  - PYREXIA [None]
